FAERS Safety Report 4363165-6 (Version None)
Quarter: 2004Q2

REPORT INFORMATION
  Report Type: 
  Country: None (occurrence: None)
  Receive Date: 20040524
  Receipt Date: 20030408
  Transmission Date: 20050107
  Serious: No
  Sender: FDA-Public Use
  Company Number: US-GLAXOSMITHKLINE-A0404123A

PATIENT
  Sex: Female
  Weight: 85.5 kg

DRUGS (1)
  1. BACTROBAN [Suspect]
     Indication: EAR LOBE INFECTION
     Route: 061

REACTIONS (3)
  - AURICULAR SWELLING [None]
  - PRURITUS [None]
  - SWELLING FACE [None]
